FAERS Safety Report 6974029-3 (Version None)
Quarter: 2010Q3

REPORT INFORMATION
  Report Type: 
  Country: None (occurrence: None)
  Receive Date: 20100909
  Receipt Date: 20100906
  Transmission Date: 20110219
  Serious: Yes (Death, Other)
  Sender: FDA-Public Use
  Company Number: AR-GENZYME-CLOF-1001187

PATIENT
  Age: 17 Year
  Sex: Male

DRUGS (2)
  1. CLOLAR [Suspect]
     Indication: ACUTE LYMPHOCYTIC LEUKAEMIA
     Dosage: 52 MG/M2, QDX5
     Route: 042
  2. CLOLAR [Suspect]
     Dosage: 52 MG/M2, QDX5
     Route: 042

REACTIONS (2)
  - APLASIA [None]
  - SEPSIS [None]
